FAERS Safety Report 17440917 (Version 1)
Quarter: 2020Q1

REPORT INFORMATION
  Report Type: Spontaneous
  Country: GB (occurrence: GB)
  Receive Date: 20200220
  Receipt Date: 20200220
  Transmission Date: 20200409
  Serious: Yes (Other)
  Sender: FDA-Public Use
  Company Number: GB-MYLANLABS-2020M1018993

PATIENT
  Age: 21 Year
  Sex: Female

DRUGS (4)
  1. METRONIDAZOLE. [Suspect]
     Active Substance: METRONIDAZOLE
     Dosage: DESENSITISATION PROTOCOL
     Route: 065
  2. METRONIDAZOLE. [Suspect]
     Active Substance: METRONIDAZOLE
     Indication: VULVOVAGINITIS TRICHOMONAL
     Dosage: RECEIVED FIVE YEARS PRIOR
     Route: 065
  3. METRONIDAZOLE. [Suspect]
     Active Substance: METRONIDAZOLE
     Dosage: RECEIVING THERAPEUTIC COURSE
     Route: 065
  4. METRONIDAZOLE. [Suspect]
     Active Substance: METRONIDAZOLE
     Indication: DRUG PROVOCATION TEST
     Dosage: RECEIVED A SINGLE DOSE
     Route: 048

REACTIONS (3)
  - Treatment failure [Unknown]
  - Rash pruritic [Unknown]
  - Fixed eruption [Recovered/Resolved]
